FAERS Safety Report 4971091-4 (Version None)
Quarter: 2006Q1

REPORT INFORMATION
  Report Type: 
  Country: None (occurrence: None)
  Receive Date: 20060228
  Receipt Date: 20050216
  Transmission Date: 20060701
  Serious: Yes (Death)
  Sender: FDA-Public Use
  Company Number: 05P-163-0291434-00

PATIENT
  Sex: Male

DRUGS (1)
  1. MIVACRON [Suspect]

REACTIONS (1)
  - DEATH [None]
